FAERS Safety Report 25628728 (Version 1)
Quarter: 2025Q3

REPORT INFORMATION
  Report Type: Spontaneous
  Country: US (occurrence: US)
  Receive Date: 20250731
  Receipt Date: 20250731
  Transmission Date: 20251021
  Serious: No
  Sender: Tarsus Pharmaceuticals
  Company Number: US-TARSUS PHARMACEUTICALS-TSP-US-2025-000586

PATIENT

DRUGS (1)
  1. XDEMVY [Suspect]
     Active Substance: LOTILANER
     Indication: Ocular demodicosis
     Route: 047
     Dates: start: 20250521, end: 20250613

REACTIONS (6)
  - Eye disorder [Unknown]
  - Product delivery mechanism issue [Unknown]
  - Liquid product physical issue [Unknown]
  - Therapy interrupted [Unknown]
  - Product use issue [Unknown]
  - Product colour issue [Unknown]

NARRATIVE: CASE EVENT DATE: 20250613
